FAERS Safety Report 7508630-5 (Version None)
Quarter: 2011Q2

REPORT INFORMATION
  Report Type: 
  Country: None (occurrence: None)
  Receive Date: 20110527
  Receipt Date: 20110517
  Transmission Date: 20111010
  Serious: Yes (Hospitalization, Other)
  Sender: FDA-Public Use
  Company Number: DE-TEVA-282127GER

PATIENT
  Age: 30 Year
  Sex: Female
  Weight: 75 kg

DRUGS (6)
  1. CYCLOPHOSPHAMIDE [Suspect]
     Indication: NATURAL KILLER-CELL LYMPHOBLASTIC LYMPHOMA
     Dosage: 1148 MILLIGRAM; 1148 MG I.V. ON 03 AND 16 NOV 2010
     Route: 042
     Dates: start: 20101103, end: 20101116
  2. DIFLUCAN [Suspect]
     Dosage: 100 MILLIGRAM;
     Route: 048
     Dates: start: 20101122, end: 20101209
  3. ONCASPAR [Suspect]
     Indication: NATURAL KILLER-CELL LYMPHOBLASTIC LYMPHOMA
     Dosage: 1X 1530 IU I.V. ON 18 NOV 2010, ON 02 DEC 2010 TERMINATION OF ONGOING THERAPY
     Route: 042
     Dates: start: 20101118, end: 20101202
  4. ASPARAGINASE, 10000 IE, AMP, MEDAC [Suspect]
     Indication: NATURAL KILLER-CELL LYMPHOBLASTIC LYMPHOMA
     Dosage: 15300 IU I.V. ON 23, 28 AND 30 DEC 2010, 01 AND 03 JAN 2011, ON 10 JAN 2011 DOSAGE UNCLEAR
     Route: 042
     Dates: start: 20101230, end: 20110110
  5. DOXORUBICIN HCL [Suspect]
     Indication: NATURAL KILLER-CELL LYMPHOBLASTIC LYMPHOMA
     Dosage: 77 MILLIGRAM; 77 MG I.V. ON 03 AND 16 NOV 2010
     Route: 042
     Dates: start: 20101103, end: 20101116
  6. VINCRISTINE SULFATE [Suspect]
     Indication: NATURAL KILLER-CELL LYMPHOBLASTIC LYMPHOMA
     Dosage: 2 MG I.V. ON 03 AND 16 NOV 2010
     Route: 042
     Dates: start: 20101103, end: 20101116

REACTIONS (2)
  - HEPATITIS ACUTE [None]
  - ANAPHYLACTIC REACTION [None]
